FAERS Safety Report 17118256 (Version 1)
Quarter: 2019Q4

REPORT INFORMATION
  Report Type: Spontaneous
  Country: IT (occurrence: IT)
  Receive Date: 20191205
  Receipt Date: 20191205
  Transmission Date: 20200122
  Serious: Yes (Life-Threatening)
  Sender: FDA-Public Use
  Company Number: IT-009507513-1912ITA000444

PATIENT
  Age: 25 Year
  Sex: Female
  Weight: 50 kg

DRUGS (1)
  1. NUVARING [Suspect]
     Active Substance: ETHINYL ESTRADIOL\ETONOGESTREL
     Indication: MENSTRUATION DELAYED
     Dosage: UNK, DOSAGE FORM: VAGINAL DELIVERY SYSTEM
     Route: 067

REACTIONS (3)
  - Self-injurious ideation [Unknown]
  - Patient isolation [Unknown]
  - Depression [Unknown]
